FAERS Safety Report 18756417 (Version 1)
Quarter: 2021Q1

REPORT INFORMATION
  Report Type: Spontaneous
  Country: US (occurrence: US)
  Receive Date: 20210119
  Receipt Date: 20210119
  Transmission Date: 20210419
  Serious: Yes (Hospitalization, Other)
  Sender: FDA-Public Use
  Company Number: US-PFIZER INC-2021034276

PATIENT
  Age: 81 Year
  Sex: Female

DRUGS (2)
  1. ADVIL DUAL ACTION WITH ACETAMINOPHEN [Suspect]
     Active Substance: ACETAMINOPHEN\IBUPROFEN
     Dosage: UNK
  2. ADVIL [Suspect]
     Active Substance: IBUPROFEN

REACTIONS (6)
  - Toxicity to various agents [Unknown]
  - Product dispensing error [Unknown]
  - Hepatic enzyme increased [Recovering/Resolving]
  - Liver injury [Unknown]
  - Product packaging confusion [Unknown]
  - Wrong product administered [Unknown]
